FAERS Safety Report 8169990-8 (Version None)
Quarter: 2012Q1

REPORT INFORMATION
  Report Type: 
  Country: None (occurrence: None)
  Receive Date: 20120228
  Receipt Date: 20120215
  Transmission Date: 20120608
  Serious: Yes (Other)
  Sender: FDA-Public Use
  Company Number: SE-ELI_LILLY_AND_COMPANY-SE201202005644

PATIENT
  Age: 52 Year
  Sex: Male

DRUGS (1)
  1. INSULIN, HUMAN [Suspect]

REACTIONS (3)
  - SYNCOPE [None]
  - BLOOD PRESSURE DECREASED [None]
  - INJECTION SITE RASH [None]
